FAERS Safety Report 18805527 (Version 1)
Quarter: 2021Q1

REPORT INFORMATION
  Report Type: Spontaneous
  Country: US (occurrence: US)
  Receive Date: 20210129
  Receipt Date: 20210129
  Transmission Date: 20210419
  Serious: No
  Sender: FDA-Public Use
  Company Number: US-SA-2021SA024242

PATIENT
  Age: 75 Year
  Sex: Male

DRUGS (1)
  1. CAPRELSA [Suspect]
     Active Substance: VANDETANIB
     Indication: THYROID CANCER
     Dosage: 200 MG, QD
     Route: 048
     Dates: start: 20200124

REACTIONS (7)
  - Disease progression [Unknown]
  - Anosmia [Unknown]
  - Diarrhoea [Unknown]
  - Ageusia [Unknown]
  - Dry skin [Unknown]
  - Dyspnoea [Unknown]
  - Nasal congestion [Unknown]
